FAERS Safety Report 19630452 (Version 3)
Quarter: 2021Q3

REPORT INFORMATION
  Report Type: Spontaneous
  Country: US (occurrence: US)
  Receive Date: 20210728
  Receipt Date: 20210817
  Transmission Date: 20211014
  Serious: No
  Sender: FDA-Public Use
  Company Number: US-SA-2021SA243249

PATIENT
  Sex: Female

DRUGS (2)
  1. DOXYCYCLINE. [Concomitant]
     Active Substance: DOXYCYCLINE
     Dosage: UNK
  2. DUPIXENT [Suspect]
     Active Substance: DUPILUMAB
     Indication: DERMATITIS ATOPIC
     Dosage: 300 MG, QOW
     Dates: start: 202006, end: 20210713

REACTIONS (6)
  - Visual impairment [Unknown]
  - Fatigue [Unknown]
  - Dermatitis atopic [Unknown]
  - Bronchitis [Unknown]
  - Arthralgia [Unknown]
  - Oral herpes [Unknown]
